FAERS Safety Report 23625578 (Version 1)
Quarter: 2024Q1

REPORT INFORMATION
  Report Type: Spontaneous
  Country: US (occurrence: US)
  Receive Date: 20240313
  Receipt Date: 20240313
  Transmission Date: 20240410
  Serious: Yes (Death, Life-Threatening, Hospitalization, Other)
  Sender: FDA-Public Use
  Company Number: US-MLMSERVICE-2024022648464501

PATIENT
  Age: 74 Year
  Sex: Female

DRUGS (1)
  1. GEMCITABINE [Suspect]
     Active Substance: GEMCITABINE
     Indication: Adenocarcinoma pancreas

REACTIONS (4)
  - Septic shock [Fatal]
  - Renal impairment [Fatal]
  - Thrombotic microangiopathy [Fatal]
  - Respiratory distress [Fatal]
